FAERS Safety Report 15935923 (Version 2)
Quarter: 2019Q4

REPORT INFORMATION
  Report Type: Other
  Country: FR (occurrence: FR)
  Receive Date: 20190208
  Receipt Date: 20191122
  Transmission Date: 20200122
  Serious: Yes (Death)
  Sender: FDA-Public Use
  Company Number: FR-CELLTRION INC.-2019FR018420

PATIENT

DRUGS (1)
  1. TRUXIMA [Suspect]
     Active Substance: RITUXIMAB-ABBS
     Indication: POLYMYOSITIS
     Dosage: CF COMMENTAIRES
     Route: 041
     Dates: start: 20181109, end: 20181207

REACTIONS (3)
  - Product use in unapproved indication [Unknown]
  - Cardio-respiratory arrest [Fatal]
  - Anaphylactic shock [Fatal]

NARRATIVE: CASE EVENT DATE: 20181207
